FAERS Safety Report 16969896 (Version 1)
Quarter: 2019Q4

REPORT INFORMATION
  Report Type: Spontaneous
  Country: US (occurrence: US)
  Receive Date: 20191029
  Receipt Date: 20191029
  Transmission Date: 20200122
  Serious: Yes (Other)
  Sender: FDA-Public Use
  Company Number: US-BAYER-2019-193228

PATIENT
  Age: 58 Year
  Sex: Female

DRUGS (1)
  1. GADAVIST [Suspect]
     Active Substance: GADOBUTROL
     Indication: MAGNETIC RESONANCE IMAGING BREAST
     Dosage: 7 ML, ONCE

REACTIONS (5)
  - Pulse abnormal [None]
  - Cold sweat [None]
  - Functional gastrointestinal disorder [None]
  - Loss of consciousness [None]
  - Nasopharyngitis [None]

NARRATIVE: CASE EVENT DATE: 20191023
